FAERS Safety Report 10931187 (Version 1)
Quarter: 2015Q1

REPORT INFORMATION
  Report Type: Spontaneous
  Country: FR (occurrence: None)
  Receive Date: 20150317
  Receipt Date: 20150317
  Transmission Date: 20150721
  Serious: Yes (Hospitalization)
  Sender: FDA-Public Use
  Company Number: CC400249831

PATIENT
  Age: 41 Year
  Sex: Female

DRUGS (3)
  1. PHENOBARBITOL [Concomitant]
  2. CEFAZOLIN [Suspect]
     Active Substance: CEFAZOLIN
     Indication: STAPHYLOCOCCAL ABSCESS
     Route: 042
  3. TOBRAMYCIN. [Concomitant]
     Active Substance: TOBRAMYCIN

REACTIONS (3)
  - Clonic convulsion [None]
  - Encephalopathy [None]
  - Haemodialysis complication [None]
